FAERS Safety Report 16578634 (Version 1)
Quarter: 2019Q3

REPORT INFORMATION
  Report Type: Report from Study
  Country: US (occurrence: US)
  Receive Date: 20190716
  Receipt Date: 20190716
  Transmission Date: 20191004
  Serious: No
  Sender: FDA-Public Use
  Company Number: US-VANDA PHARMACEUTICALS, INC-2019TASUS003109

PATIENT
  Sex: Male

DRUGS (3)
  1. HETLIOZ [Suspect]
     Active Substance: TASIMELTEON
     Dosage: 40 MG, UNK
  2. HETLIOZ [Suspect]
     Active Substance: TASIMELTEON
     Dosage: 60 MG, UNK
  3. HETLIOZ [Suspect]
     Active Substance: TASIMELTEON
     Indication: NON-24-HOUR SLEEP-WAKE DISORDER
     Dosage: 20 MG, QD
     Route: 048

REACTIONS (2)
  - Drug ineffective [Unknown]
  - Intentional overdose [Unknown]
